FAERS Safety Report 18195775 (Version 1)
Quarter: 2020Q3

REPORT INFORMATION
  Report Type: Spontaneous
  Country: IR (occurrence: IR)
  Receive Date: 20200825
  Receipt Date: 20200825
  Transmission Date: 20201103
  Serious: Yes (Hospitalization, Other)
  Sender: FDA-Public Use
  Company Number: IR-GLAXOSMITHKLINE-IR2020GSK147877

PATIENT
  Age: 41 Year
  Sex: Male

DRUGS (4)
  1. ACICLOVIR [Suspect]
     Active Substance: ACYCLOVIR
     Indication: PRODUCT USED FOR UNKNOWN INDICATION
     Dosage: UNK
  2. AMANTADINE. [Suspect]
     Active Substance: AMANTADINE HYDROCHLORIDE
     Indication: NASOPHARYNGITIS
     Dosage: UNK
  3. NAPROXEN. [Suspect]
     Active Substance: NAPROXEN
     Indication: NASOPHARYNGITIS
     Dosage: UNK
  4. DICLOFENAC [Suspect]
     Active Substance: DICLOFENAC
     Indication: NASOPHARYNGITIS
     Dosage: UNK

REACTIONS (17)
  - Oropharyngeal pain [Recovered/Resolved]
  - Hepatic enzyme increased [Recovered/Resolved]
  - Rash maculo-papular [Recovered/Resolved]
  - Scab [Recovered/Resolved]
  - Rash erythematous [Recovered/Resolved]
  - Blood creatine phosphokinase increased [Recovered/Resolved]
  - Blood lactate dehydrogenase increased [Recovered/Resolved]
  - C-reactive protein increased [Recovered/Resolved]
  - Skin lesion [Recovered/Resolved]
  - Blood sodium decreased [Recovered/Resolved]
  - Pyrexia [Recovered/Resolved]
  - Oral disorder [Recovered/Resolved]
  - Red blood cell sedimentation rate increased [Recovered/Resolved]
  - Toxic epidermal necrolysis [Recovered/Resolved]
  - Eye pruritus [Recovered/Resolved]
  - Pruritus [Recovered/Resolved]
  - Rash vesicular [Recovered/Resolved]
